FAERS Safety Report 7770749-1 (Version None)
Quarter: 2011Q3

REPORT INFORMATION
  Report Type: 
  Country: None (occurrence: None)
  Receive Date: 20110922
  Receipt Date: 20100802
  Transmission Date: 20111222
  Serious: No
  Sender: FDA-Public Use
  Company Number: US-ASTRAZENECA-2010SE36089

PATIENT
  Age: 54 Year
  Sex: Male
  Weight: 78 kg

DRUGS (4)
  1. SEROQUEL [Suspect]
     Route: 048
  2. SEROQUEL [Suspect]
     Indication: BIPOLAR DISORDER
     Route: 048
     Dates: start: 20090101
  3. PROZAC [Concomitant]
  4. REMERON [Concomitant]
     Indication: SLEEP DISORDER

REACTIONS (4)
  - RESTLESSNESS [None]
  - FEAR [None]
  - CRYING [None]
  - DRUG DOSE OMISSION [None]
